FAERS Safety Report 11955276 (Version 1)
Quarter: 2016Q1

REPORT INFORMATION
  Report Type: Report from Study
  Country: US (occurrence: US)
  Receive Date: 20160126
  Receipt Date: 20160126
  Transmission Date: 20160526
  Serious: No
  Sender: FDA-Public Use
  Company Number: US-ABBVIE-15K-163-1363089-00

PATIENT
  Age: 41 Year
  Sex: Female

DRUGS (3)
  1. HUMIRA [Suspect]
     Active Substance: ADALIMUMAB
     Indication: CROHN^S DISEASE
     Route: 065
     Dates: start: 20150303, end: 20150303
  2. HUMIRA [Suspect]
     Active Substance: ADALIMUMAB
     Route: 065
     Dates: start: 20150331
  3. HUMIRA [Suspect]
     Active Substance: ADALIMUMAB
     Indication: INTESTINAL FISTULA
     Route: 065
     Dates: start: 20150317, end: 20150317

REACTIONS (6)
  - Hypoaesthesia [Not Recovered/Not Resolved]
  - Muscle spasms [Recovered/Resolved]
  - Faeces discoloured [Not Recovered/Not Resolved]
  - Pain [Recovered/Resolved]
  - Fatigue [Recovered/Resolved]
  - Pain in extremity [Recovered/Resolved]

NARRATIVE: CASE EVENT DATE: 20150303
